FAERS Safety Report 23517126 (Version 1)
Quarter: 2024Q1

REPORT INFORMATION
  Report Type: Report from Study
  Country: CA (occurrence: CA)
  Receive Date: 20240213
  Receipt Date: 20240213
  Transmission Date: 20240410
  Serious: Yes (Hospitalization)
  Sender: FDA-Public Use
  Company Number: CA-ULTRAGENYX PHARMACEUTICAL INC.-CA-UGX-24-00197

PATIENT
  Age: 6 Year
  Sex: Female
  Weight: 23.3 kg

DRUGS (7)
  1. DOJOLVI [Suspect]
     Active Substance: TRIHEPTANOIN
     Indication: Trifunctional protein deficiency
     Dosage: 12 MILLILITER, FIVE TIMES A DAY, VIA G-TUBE
     Dates: start: 20171016
  2. JUGLANS REGIA SEED OIL [Concomitant]
     Indication: Product used for unknown indication
     Dosage: 1.5 MILLILITER
     Dates: start: 201510
  3. DIETARY SUPPLEMENT [Concomitant]
     Active Substance: DIETARY SUPPLEMENT
     Indication: Product used for unknown indication
     Dosage: 2 NIGHTTIME DOSES
  4. VITAMIN D3 [Concomitant]
     Active Substance: CHOLECALCIFEROL
     Indication: Product used for unknown indication
     Dosage: 400 INTERNATIONAL UNIT
     Dates: start: 201510
  5. CALCIUM [Concomitant]
     Active Substance: CALCIUM
     Indication: Product used for unknown indication
     Dosage: 250 MILLIGRAM
     Dates: start: 201510
  6. FERAMAX [Concomitant]
     Active Substance: IRON\POLYSACCHARIDES
     Indication: Product used for unknown indication
     Dosage: 15 MILLIGRAM
     Dates: start: 201510
  7. OMEGA 3 EPA DHA [Concomitant]
     Indication: Fatty acid oxidation disorder
     Dosage: 0.5 MILLILITER
     Dates: start: 201510

REACTIONS (8)
  - Gastrointestinal disorder [Recovered/Resolved]
  - COVID-19 [Unknown]
  - Asthenia [Unknown]
  - Peroneal nerve palsy [Unknown]
  - Blood creatine phosphokinase increased [Unknown]
  - Fatigue [Unknown]
  - Diarrhoea [Unknown]
  - Muscle spasms [Unknown]

NARRATIVE: CASE EVENT DATE: 20221001
